FAERS Safety Report 21559731 (Version 3)
Quarter: 2022Q4

REPORT INFORMATION
  Report Type: Other
  Country: None (occurrence: PT)
  Receive Date: 20221107
  Receipt Date: 20221227
  Transmission Date: 20230113
  Serious: Yes (Hospitalization, Other)
  Sender: FDA-Public Use
  Company Number: PT-Nova Laboratories Limited-2134579

PATIENT
  Age: 4 Year
  Sex: Male

DRUGS (5)
  1. PURIXAN [Suspect]
     Active Substance: MERCAPTOPURINE
     Indication: Acute lymphocytic leukaemia
  2. ASPARAGINASE [Suspect]
     Active Substance: ASPARAGINASE
  3. DEXAMETHASONE [Suspect]
     Active Substance: DEXAMETHASONE
  4. METHOTREXATE [Suspect]
     Active Substance: METHOTREXATE
  5. VINCRISTINE [Suspect]
     Active Substance: VINCRISTINE

REACTIONS (4)
  - Hypoalbuminaemia [Unknown]
  - Coagulation test abnormal [Unknown]
  - Cholecystitis acute [Unknown]
  - Pancreatitis [Unknown]

NARRATIVE: CASE EVENT DATE: 20130101
